FAERS Safety Report 12223220 (Version 4)
Quarter: 2017Q4

REPORT INFORMATION
  Report Type: Spontaneous
  Country: US (occurrence: GH)
  Receive Date: 20160330
  Receipt Date: 20171009
  Transmission Date: 20180320
  Serious: Yes (Death, Life-Threatening, Other)
  Sender: FDA-Public Use
  Company Number: US-PFIZER INC-2016177803

PATIENT
  Age: 31 Year
  Sex: Female

DRUGS (6)
  1. BUPIVACAINE. [Suspect]
     Active Substance: BUPIVACAINE
     Dosage: UNK
  2. SUXAMETHONIUM [Concomitant]
     Active Substance: SUCCINYLCHOLINE
     Indication: GENERAL ANAESTHESIA
     Dosage: 100 MG, UNK
  3. TRANEXAMIC ACID. [Suspect]
     Active Substance: TRANEXAMIC ACID
     Indication: SPINAL ANAESTHESIA
     Dosage: 200MG IN 2ML
     Route: 037
  4. PROPOFOL. [Concomitant]
     Active Substance: PROPOFOL
     Indication: GENERAL ANAESTHESIA
     Dosage: 150 MG, UNK
  5. CEFUROXIME. [Concomitant]
     Active Substance: CEFUROXIME
     Indication: ABDOMINAL TENDERNESS
     Dosage: UNK
     Route: 042
  6. RINGER LACTATE /01126301/ [Concomitant]
     Dosage: 1 L, UNK
     Route: 042

REACTIONS (7)
  - Hypoxia [Fatal]
  - Hypertension [Unknown]
  - Cardio-respiratory arrest [Fatal]
  - Ventricular tachycardia [Recovered/Resolved]
  - Wrong drug administered [Fatal]
  - Haemodynamic instability [Unknown]
  - Status epilepticus [Recovered/Resolved]
